FAERS Safety Report 4668808-5 (Version None)
Quarter: 2005Q2

REPORT INFORMATION
  Report Type: 
  Country: None (occurrence: None)
  Receive Date: 20050523
  Receipt Date: 20050209
  Transmission Date: 20051028
  Serious: Yes (Other)
  Sender: FDA-Public Use
  Company Number: PHNU2005DE00892

PATIENT
  Age: 67 Year
  Sex: Male
  Weight: 60 kg

DRUGS (5)
  1. ZOMETA [Suspect]
     Indication: PLASMACYTOMA
     Dosage: 4 MG, QMO
     Dates: start: 20021101, end: 20041228
  2. NEXIUM [Concomitant]
     Indication: VARICES OESOPHAGEAL
     Dosage: 20 MG, QD
     Dates: start: 20020701
  3. CALCILAC KT [Concomitant]
     Indication: PLASMACYTOMA
     Dosage: 1000 MG, QD
     Dates: start: 20020701
  4. PREDNISOLONE [Suspect]
     Indication: AUTOIMMUNE HEPATITIS
     Dosage: 7.5 MG, QD
     Dates: start: 20020701, end: 20050101
  5. PREDNISOLONE [Suspect]
     Dosage: 5 MG, QD
     Route: 048
     Dates: start: 20050101

REACTIONS (1)
  - OSTEONECROSIS [None]
